FAERS Safety Report 8761486 (Version 2)
Quarter: 2012Q4

REPORT INFORMATION
  Report Type: 
  Country: JP (occurrence: JP)
  Receive Date: 20120829
  Receipt Date: 20120911
  Transmission Date: 20130627
  Serious: Yes (Death, Hospitalization, Other)
  Sender: FDA-Public Use
  Company Number: JP-AMGEN-JPNSP2012054370

PATIENT
  Age: 77 Year
  Sex: Male
  Weight: 60 kg

DRUGS (11)
  1. ENBREL [Suspect]
     Indication: RHEUMATOID ARTHRITIS
     Dosage: 25 mg, weekly
     Route: 058
     Dates: start: 20060213, end: 20070901
  2. ENBREL [Suspect]
     Dosage: 25 mg/2 weeks (25mg 0.5 time weekly)
     Route: 058
     Dates: start: 20070915, end: 20120713
  3. MIRCERA [Concomitant]
     Indication: NEPHROGENIC ANAEMIA
     Dosage: 100 ug, monthly
     Dates: start: 20111207, end: 20120704
  4. SHIOSOL [Concomitant]
     Indication: RHEUMATOID ARTHRITIS
     Dosage: 25 mg, monthly
     Dates: start: 20060213, end: 20120620
  5. ZANTAC [Concomitant]
     Indication: GASTRITIS PROPHYLAXIS
     Dosage: 150 mg, 2x/day
     Route: 048
     Dates: start: 20060213, end: 20120713
  6. ACTOS [Concomitant]
     Indication: DIABETES MELLITUS
     Dosage: 30 mg, 1x/day
     Route: 048
     Dates: start: 20060213, end: 20120713
  7. BASEN [Concomitant]
     Indication: DIABETES MELLITUS
     Dosage: 0.3 mg, 3x/day
     Route: 048
     Dates: start: 20060213, end: 20120713
  8. PLAVIX [Concomitant]
     Indication: CEREBRAL INFARCTION
     Dosage: 75 mg, 1x/day
     Route: 048
     Dates: start: 20060213, end: 20120713
  9. OLMETEC [Concomitant]
     Indication: HYPERTENSION
     Dosage: 20 mg, 1x/day
     Route: 048
     Dates: start: 20060213, end: 20120713
  10. AMLODIN [Concomitant]
     Indication: HYPERTENSION
     Dosage: 5 mg, 1x/day
     Route: 048
     Dates: start: 20060213, end: 20120713
  11. LAXOBERON [Concomitant]
     Indication: CONSTIPATION
     Dosage: 2.5 mg, 1x/day
     Route: 048
     Dates: start: 20060213, end: 20120713

REACTIONS (4)
  - Acute hepatic failure [Fatal]
  - Renal failure chronic [Fatal]
  - Myelodysplastic syndrome [Unknown]
  - Pancytopenia [Fatal]
